FAERS Safety Report 4445192-3 (Version None)
Quarter: 2004Q3

REPORT INFORMATION
  Report Type: 
  Country: None (occurrence: None)
  Receive Date: 20040819
  Receipt Date: 20040430
  Transmission Date: 20050211
  Serious: Yes (Hospitalization, Other)
  Sender: FDA-Public Use
  Company Number: 2004016715

PATIENT
  Sex: Female
  Weight: 45.3597 kg

DRUGS (2)
  1. NORVASC [Suspect]
     Indication: HYPERTENSION
     Dosage: 5 MG (DAILY), ORAL
     Route: 048
     Dates: end: 20040225
  2. ATENOLOL [Suspect]
     Indication: HYPERTENSION
     Dosage: 25 MG (DAILY), ORAL
     Route: 048

REACTIONS (12)
  - BLOOD PRESSURE INCREASED [None]
  - CHEST PAIN [None]
  - DIZZINESS [None]
  - DRUG ERUPTION [None]
  - FATIGUE [None]
  - FLATULENCE [None]
  - HAEMATOCHEZIA [None]
  - NAUSEA [None]
  - OEDEMA PERIPHERAL [None]
  - RASH [None]
  - SKIN ATROPHY [None]
  - SKIN DISORDER [None]
